FAERS Safety Report 8285729-X (Version None)
Quarter: 2012Q2

REPORT INFORMATION
  Report Type: 
  Country: None (occurrence: None)
  Receive Date: 20120413
  Receipt Date: 20120413
  Transmission Date: 20120825
  Serious: Yes (Hospitalization)
  Sender: FDA-Public Use
  Company Number: CA-AMGEN-CANCT2012020236

PATIENT
  Age: 60 Year
  Sex: Female
  Weight: 68.2 kg

DRUGS (35)
  1. MAXERAN [Concomitant]
     Dosage: 10 MG, PRN
     Route: 048
     Dates: start: 20111221, end: 20120120
  2. EMEND [Concomitant]
     Dosage: UNK MG, UNK
     Route: 048
     Dates: start: 20111214, end: 20120104
  3. CINNAMON CAPS [Concomitant]
     Route: 048
     Dates: start: 20110415
  4. PREVACID [Concomitant]
     Dosage: 30 MG, QD
     Route: 048
     Dates: start: 20060215, end: 20120107
  5. GLUCOSAMINE [Concomitant]
     Dosage: 500 MG, UNK
     Route: 048
     Dates: start: 20091015
  6. DEXAMETHASONE [Concomitant]
     Dosage: 8 MG, UNK
     Route: 042
     Dates: start: 20111102, end: 20111214
  7. ONDANSETRON [Concomitant]
     Dosage: 8 MG, PRN
     Route: 048
     Dates: start: 20111102, end: 20111214
  8. STEMITIL [Concomitant]
     Route: 048
     Dates: start: 20111103, end: 20120111
  9. EPIRUBICIN [Concomitant]
     Dosage: UNK UNK, Q3WK
     Route: 042
     Dates: start: 20111102, end: 20111214
  10. DEXAMETHASONE [Concomitant]
     Route: 048
     Dates: start: 20111103, end: 20120106
  11. PLACEBO [Suspect]
     Indication: BREAST CANCER
     Route: 058
     Dates: start: 20111102
  12. CYCLOPHOSPHAMIDE [Concomitant]
     Dosage: UNK UNK, Q3WK
     Route: 042
     Dates: start: 20111102, end: 20111214
  13. ATIVAN [Concomitant]
     Dosage: 1 MG, UNK
     Route: 048
     Dates: start: 20111206
  14. EMEND [Concomitant]
     Route: 048
     Dates: start: 20111215, end: 20120104
  15. TAXOTERE [Concomitant]
     Dosage: QD
     Route: 042
     Dates: start: 20120104, end: 20120104
  16. FLUOROURACIL [Concomitant]
     Dosage: UNK UNK, Q3WK
     Route: 042
     Dates: start: 20111102, end: 20111214
  17. ECHINACEA [Concomitant]
     Dosage: UNK
     Route: 048
     Dates: start: 20120101, end: 20120104
  18. CINNAMON [Concomitant]
     Dosage: 1000 MG, UNK
     Route: 048
     Dates: start: 20110415
  19. VITAMIN D [Concomitant]
     Dosage: 400 IU, QD
     Route: 048
     Dates: start: 20091015
  20. TYLENOL EXTRA STENGTH [Concomitant]
     Route: 048
     Dates: start: 20120106, end: 20120107
  21. ASCORBIC ACID [Concomitant]
     Dosage: 500 MUG, UNK
     Route: 048
     Dates: start: 20111015
  22. ONDANSETRON [Concomitant]
     Route: 048
     Dates: start: 20120104, end: 20120107
  23. PROCHLOROPERAZINE [Concomitant]
     Route: 048
     Dates: start: 20120104, end: 20120104
  24. NEUPOGEN [Concomitant]
     Route: 058
     Dates: start: 20120105, end: 20120111
  25. BLINDED DENOSUMAB [Suspect]
     Indication: BREAST CANCER
     Route: 058
     Dates: start: 20111102
  26. PROCHLORPERAZINE [Concomitant]
     Dosage: 10 MG, PRN
     Route: 048
     Dates: start: 20111103, end: 20120111
  27. EXTRA STRENGTH TYLENOL [Concomitant]
     Dosage: 500 MG, UNK
     Route: 048
     Dates: start: 20120106, end: 20120107
  28. VITAMIN D [Concomitant]
     Route: 048
     Dates: start: 20111102
  29. CALCIUM CARBONATE [Concomitant]
     Dosage: 600 MG, QD
     Route: 048
     Dates: start: 20111102
  30. NEUPOGEN [Suspect]
     Dosage: 300 MUG, QD
     Route: 058
     Dates: start: 20120105, end: 20120111
  31. GRAVOL TAB [Concomitant]
     Dosage: UNK MG, UNK
     Route: 048
     Dates: start: 20111122, end: 20111126
  32. IMODIUM [Concomitant]
     Dosage: UNK UNK, PRN
     Route: 048
     Dates: start: 20111201, end: 20120108
  33. CENTRUM [Concomitant]
     Dosage: UNK
     Route: 048
     Dates: start: 20091015
  34. SOFLAX [Concomitant]
     Dosage: 100 MG, UNK
     Route: 048
     Dates: start: 20120104, end: 20120107
  35. SALMON OIL [Concomitant]
     Dosage: 1000 MG, UNK
     Route: 048
     Dates: start: 20091015

REACTIONS (5)
  - DIARRHOEA [None]
  - DEHYDRATION [None]
  - ARTHRALGIA [None]
  - MYALGIA [None]
  - NAUSEA [None]
